FAERS Safety Report 9491980 (Version 2)
Quarter: 2013Q3

REPORT INFORMATION
  Report Type: Report from Study
  Country: JP (occurrence: JP)
  Receive Date: 20130830
  Receipt Date: 20130830
  Transmission Date: 20140515
  Serious: Yes (Death, Life-Threatening, Hospitalization)
  Sender: FDA-Public Use
  Company Number: JP-009507513-1308JPN005305

PATIENT
  Age: 5 Decade
  Sex: Male
  Weight: 58 kg

DRUGS (15)
  1. CANCIDAS FOR INTRAVENOUS DRIP INFUSION 50MG [Suspect]
     Indication: SYSTEMIC CANDIDA
     Dosage: 50 MG, QD
     Route: 041
     Dates: start: 20130801, end: 20130806
  2. CANCIDAS FOR INTRAVENOUS DRIP INFUSION 70MG [Suspect]
     Indication: SYSTEMIC CANDIDA
     Dosage: 70 MG, QD
     Route: 041
     Dates: start: 20130731, end: 20130731
  3. AMPHOTERICIN B [Concomitant]
     Indication: SYSTEMIC CANDIDA
     Dosage: 150 MG, UNK
     Route: 041
     Dates: start: 20130723, end: 20130730
  4. VORICONAZOLE [Concomitant]
     Indication: SYSTEMIC CANDIDA
     Dosage: 200 MG, DIVIDED DOSE FREQUENCY UNKNOWN
     Route: 041
     Dates: start: 20130718, end: 20130730
  5. ALEVIATIN [Concomitant]
     Indication: CONVULSION
     Dosage: 250 MG, QD
     Route: 051
     Dates: start: 20130712, end: 20130806
  6. PHENOBAL [Concomitant]
     Indication: CONVULSION
     Dosage: 100 MG, QD
     Route: 051
     Dates: start: 20130723, end: 20130801
  7. ADONA [Concomitant]
     Indication: HAEMORRHAGIC DIATHESIS
     Dosage: 50 MG, BID
     Route: 051
     Dates: start: 20130712, end: 20130806
  8. GASTER [Concomitant]
     Indication: PROPHYLAXIS
     Dosage: 10 MG, QD
     Route: 051
     Dates: start: 20130710, end: 20130806
  9. NICARDIPINE HYDROCHLORIDE [Concomitant]
     Indication: HYPERTENSION
     Dosage: 10 MG, QD
     Route: 051
     Dates: start: 20130722, end: 20130806
  10. FINIBAX [Concomitant]
     Indication: SEPSIS
     Dosage: 250 MG, BID
     Route: 051
     Dates: start: 20130729, end: 20130806
  11. TARGOCID [Concomitant]
     Indication: SEPSIS
     Dosage: 200 MG, QD
     Route: 051
     Dates: start: 20130730, end: 20130806
  12. TETRAMIDE [Concomitant]
     Indication: INSOMNIA
     Dosage: 10 MG, QD
     Route: 048
     Dates: start: 20130804, end: 20130804
  13. EPOGIN [Concomitant]
     Indication: RENAL FAILURE CHRONIC
     Dosage: 0.5 ML, QD
     Route: 051
     Dates: start: 20130806, end: 20130806
  14. NEUTROGIN [Concomitant]
     Indication: WHITE BLOOD CELL COUNT DECREASED
     Dosage: 100 MICROGRAM, QD
     Route: 051
     Dates: start: 20130805, end: 20130806
  15. ALBUMIN HUMAN [Concomitant]
     Indication: HYPOALBUMINAEMIA
     Dosage: 50 ML, QD
     Route: 051
     Dates: start: 20130806, end: 20130806

REACTIONS (4)
  - Sepsis [Fatal]
  - White blood cell count decreased [Recovered/Resolved]
  - Neutrophil count increased [Fatal]
  - Drug ineffective [Unknown]
